FAERS Safety Report 21448579 (Version 1)
Quarter: 2022Q4

REPORT INFORMATION
  Report Type: Spontaneous
  Country: US (occurrence: US)
  Receive Date: 20221013
  Receipt Date: 20221013
  Transmission Date: 20230113
  Serious: Yes (Other)
  Sender: FDA-Public Use
  Company Number: US-ENDO PHARMACEUTICALS INC-2022-005825

PATIENT
  Age: 0 Year
  Sex: Female

DRUGS (2)
  1. PITOCIN [Suspect]
     Active Substance: OXYTOCIN
     Indication: Product used for unknown indication
     Dosage: UNK UNKNOWN, UNKNOWN
     Route: 064
     Dates: start: 20211230
  2. PROPOFOL [Concomitant]
     Active Substance: PROPOFOL
     Indication: Product used for unknown indication
     Dosage: UNK UNKNOWN, UNKNOWN
     Route: 065

REACTIONS (5)
  - Foetal acidosis [Unknown]
  - Foetal distress syndrome [Unknown]
  - Encephalopathy [Unknown]
  - Hypoxia [Unknown]
  - Foetal exposure during delivery [Recovered/Resolved]

NARRATIVE: CASE EVENT DATE: 20211230
